FAERS Safety Report 6676318-9 (Version None)
Quarter: 2010Q1

REPORT INFORMATION
  Report Type: 
  Country: None (occurrence: None)
  Receive Date: 20100331
  Receipt Date: 20090402
  Transmission Date: 20100710
  Serious: Yes (Other)
  Sender: FDA-Public Use
  Company Number: 2009183597

PATIENT
  Sex: Male

DRUGS (1)
  1. SUTENT [Suspect]
     Dosage: 15 MG, 1X/DAY, 4 WEEKS ON/2WEEKS OFF

REACTIONS (1)
  - BLOOD CREATININE INCREASED [None]
